FAERS Safety Report 25423425 (Version 2)
Quarter: 2025Q3

REPORT INFORMATION
  Report Type: Spontaneous
  Country: US (occurrence: US)
  Receive Date: 20250611
  Receipt Date: 20250718
  Transmission Date: 20251021
  Serious: No
  Sender: MYLAN
  Company Number: US-MYLANLABS-2025M1047027

PATIENT
  Sex: Male
  Weight: 90.72 kg

DRUGS (8)
  1. RYZUMVI [Suspect]
     Active Substance: PHENTOLAMINE MESYLATE
     Indication: Mydriasis
  2. RYZUMVI [Suspect]
     Active Substance: PHENTOLAMINE MESYLATE
     Route: 047
  3. RYZUMVI [Suspect]
     Active Substance: PHENTOLAMINE MESYLATE
     Route: 047
  4. RYZUMVI [Suspect]
     Active Substance: PHENTOLAMINE MESYLATE
  5. TROPICAMIDE [Concomitant]
     Active Substance: TROPICAMIDE
  6. TROPICAMIDE [Concomitant]
     Active Substance: TROPICAMIDE
     Route: 065
  7. TROPICAMIDE [Concomitant]
     Active Substance: TROPICAMIDE
     Route: 065
  8. TROPICAMIDE [Concomitant]
     Active Substance: TROPICAMIDE

REACTIONS (1)
  - Ocular hyperaemia [Recovered/Resolved]

NARRATIVE: CASE EVENT DATE: 20250101
